FAERS Safety Report 14948922 (Version 1)
Quarter: 2018Q2

REPORT INFORMATION
  Report Type: Spontaneous
  Country: US (occurrence: US)
  Receive Date: 20180529
  Receipt Date: 20180529
  Transmission Date: 20180711
  Serious: No
  Sender: FDA-Public Use
  Company Number: US-GLAXOSMITHKLINE-US2018092513

PATIENT
  Age: 48 Year
  Sex: Female

DRUGS (1)
  1. VENTOLIN HFA [Suspect]
     Active Substance: ALBUTEROL SULFATE
     Indication: ASTHMA
     Dosage: 2 PUFF(S), QID
     Dates: start: 1998

REACTIONS (4)
  - Wrong technique in product usage process [Unknown]
  - Condition aggravated [Unknown]
  - Drug effect decreased [Unknown]
  - Malaise [Unknown]

NARRATIVE: CASE EVENT DATE: 201709
